FAERS Safety Report 18854477 (Version 1)
Quarter: 2021Q1

REPORT INFORMATION
  Report Type: Spontaneous
  Country: GR (occurrence: GR)
  Receive Date: 20210205
  Receipt Date: 20210205
  Transmission Date: 20210420
  Serious: Yes (Disabling, Other)
  Sender: FDA-Public Use
  Company Number: GR-GLAXOSMITHKLINE-GR2021024405

PATIENT
  Age: 66 Year
  Sex: Female
  Weight: 76 kg

DRUGS (3)
  1. LIPITOR [Concomitant]
     Active Substance: ATORVASTATIN CALCIUM
     Indication: PRODUCT USED FOR UNKNOWN INDICATION
     Dosage: 1 DOSAGE FORM, 1 DAY (QD)
     Route: 065
  2. VALTREX [Suspect]
     Active Substance: VALACYCLOVIR HYDROCHLORIDE
     Indication: PROPHYLAXIS
     Dosage: 500 MG, BID
     Route: 065
  3. ZOSTAVAX [Suspect]
     Active Substance: VARICELLA-ZOSTER VIRUS STRAIN OKA/MERCK LIVE ANTIGEN
     Indication: PROPHYLAXIS
     Dosage: 1 DF (1 DOSAGE FORM)
     Route: 030
     Dates: start: 20190523

REACTIONS (12)
  - Immune system disorder [Unknown]
  - Herpes ophthalmic [Unknown]
  - Herpes ophthalmic [Recovering/Resolving]
  - Eye pain [Recovering/Resolving]
  - Herpes ophthalmic [Recovering/Resolving]
  - Herpes ophthalmic [Unknown]
  - Herpes ophthalmic [Recovering/Resolving]
  - Herpes ophthalmic [Recovered/Resolved]
  - Herpes ophthalmic [Recovering/Resolving]
  - Transaminases increased [Unknown]
  - Dry eye [Unknown]
  - Herpes ophthalmic [Recovering/Resolving]

NARRATIVE: CASE EVENT DATE: 20190530
